FAERS Safety Report 22115051 (Version 1)
Quarter: 2023Q1

REPORT INFORMATION
  Report Type: Report from Study
  Country: KR (occurrence: KR)
  Receive Date: 20230320
  Receipt Date: 20230320
  Transmission Date: 20230418
  Serious: Yes (Hospitalization, Other)
  Sender: FDA-Public Use
  Company Number: KR-MYLANLABS-2023M1028203

PATIENT
  Age: 77 Year
  Sex: Female

DRUGS (17)
  1. TRASTUZUMAB [Suspect]
     Active Substance: TRASTUZUMAB
     Indication: Breast cancer female
     Dosage: UNK (3 WEEKS)
     Route: 042
     Dates: start: 20201103
  2. DEXAMETHASONE SODIUM PHOSPHATE [Concomitant]
     Active Substance: DEXAMETHASONE SODIUM PHOSPHATE
     Indication: Breast cancer female
     Dosage: 16 MILLIGRAM, Q3W
     Route: 042
     Dates: start: 20201013
  3. DEXAMETHASONE SODIUM PHOSPHATE [Concomitant]
     Active Substance: DEXAMETHASONE SODIUM PHOSPHATE
     Dosage: 8 MILLIGRAM, Q3W
     Route: 042
     Dates: start: 20201014
  4. ACETAMINOPHEN [Concomitant]
     Active Substance: ACETAMINOPHEN
     Indication: Breast cancer female
     Dosage: 1950 MILLIGRAM, Q3W
     Route: 048
     Dates: start: 20201013
  5. ASPIRIN [Concomitant]
     Active Substance: ASPIRIN
     Indication: Essential hypertension
     Dosage: 100 MILLIGRAM, QD
     Route: 048
     Dates: start: 20200923
  6. CELECOXIB [Concomitant]
     Active Substance: CELECOXIB
     Indication: Prophylaxis
     Dosage: 200 MILLIGRAM, QD
     Route: 048
     Dates: start: 20201007
  7. CHOLINE ALFOSCERATE [Concomitant]
     Active Substance: CHOLINE ALFOSCERATE
     Dosage: 400 MILLIGRAM, QD
     Route: 048
     Dates: start: 20200917
  8. MEGESTROL ACETATE [Concomitant]
     Active Substance: MEGESTROL ACETATE
     Indication: Prophylaxis
     Dosage: 800 MILLIGRAM, QD
     Route: 048
     Dates: start: 20201023
  9. FENTANYL [Concomitant]
     Active Substance: FENTANYL
     Indication: Prophylaxis
     Dosage: 1.37 MILLIGRAM, QD (ROUTE OTHER)
     Route: 065
     Dates: start: 20200917
  10. OXYCODONE HYDROCHLORIDE [Concomitant]
     Active Substance: OXYCODONE HYDROCHLORIDE
     Indication: Prophylaxis
     Dosage: 5 MILLIGRAM
     Route: 048
     Dates: start: 20200930
  11. CEFACLOR [Concomitant]
     Active Substance: CEFACLOR
     Dosage: 750 MILLIGRAM, QD
     Route: 048
     Dates: start: 20201012, end: 20201014
  12. TAMSULOSIN HYDROCHLORIDE [Concomitant]
     Active Substance: TAMSULOSIN HYDROCHLORIDE
     Dosage: 0.2 MILLIGRAM, QD
     Route: 048
     Dates: start: 20201203
  13. THIAMINE HYDROCHLORIDE [Concomitant]
     Active Substance: THIAMINE HYDROCHLORIDE
     Dosage: 10 MILLIGRAM (0.33 DAY)
     Route: 048
     Dates: start: 20201130, end: 20201207
  14. CEFEPIME HYDROCHLORIDE [Concomitant]
     Active Substance: CEFEPIME HYDROCHLORIDE
     Indication: Cystitis
     Dosage: 2 MILLIGRAM (0.33 DAY)
     Route: 042
     Dates: start: 20201126, end: 20201130
  15. CEFEPIME HYDROCHLORIDE [Concomitant]
     Active Substance: CEFEPIME HYDROCHLORIDE
     Dosage: 2 MILLIGRAM, BID
     Route: 042
     Dates: start: 20201201, end: 20201203
  16. PREGABALIN [Concomitant]
     Active Substance: PREGABALIN
     Dosage: 75 MILLIGRAM, BID
     Route: 048
     Dates: start: 20201105
  17. MUPIROCIN [Concomitant]
     Active Substance: MUPIROCIN
     Dosage: 10 GRAM (SKIN LOTION VIA EXTERNAL ROUTE)
     Route: 065
     Dates: start: 20201007

REACTIONS (6)
  - Febrile neutropenia [Recovered/Resolved]
  - Neutropenia [Recovered/Resolved]
  - Cystitis [Recovering/Resolving]
  - Rash [Recovered/Resolved]
  - Ocular hyperaemia [Recovering/Resolving]
  - Pruritus [Recovering/Resolving]

NARRATIVE: CASE EVENT DATE: 20201126
